FAERS Safety Report 8551113 (Version 3)
Quarter: 2013Q2

REPORT INFORMATION
  Report Type: Report from Study
  Country: CA (occurrence: CA)
  Receive Date: 20120508
  Receipt Date: 20130510
  Transmission Date: 20140414
  Serious: Yes (Hospitalization, Other)
  Sender: FDA-Public Use
  Company Number: PHHY2012CA038387

PATIENT
  Age: 73 Year
  Sex: Female

DRUGS (11)
  1. CLOZARIL [Suspect]
     Indication: BIPOLAR DISORDER
     Dosage: 400 MG, UNK
     Route: 048
     Dates: start: 20120217
  2. CLOZARIL [Suspect]
     Dosage: 300 MG, UNK
  3. LITHIUM [Suspect]
     Dosage: 450 MG, UNK
     Route: 048
  4. ESTRADIOL [Concomitant]
  5. PROVERA [Concomitant]
  6. CALCIUM [Concomitant]
  7. LAMICTAL [Concomitant]
     Dosage: 100 MG, UNK
  8. LIPIDIL MICRO [Concomitant]
     Dosage: UNK
  9. GLUCOPHAGE [Concomitant]
     Dosage: 200 MG, TID
  10. PANTOLOC [Concomitant]
     Dosage: 40 MG, UNK
  11. SERAX [Concomitant]
     Dosage: UNK

REACTIONS (7)
  - Hypercalcaemia [Recovered/Resolved]
  - Skin discolouration [Recovered/Resolved]
  - Muscle rigidity [Recovered/Resolved]
  - Malaise [Recovered/Resolved]
  - Dyspnoea [Recovered/Resolved]
  - Dehydration [Unknown]
  - Convulsion [Unknown]
